FAERS Safety Report 10317875 (Version 2)
Quarter: 2014Q3

REPORT INFORMATION
  Report Type: Other
  Country: US (occurrence: US)
  Receive Date: 20140719
  Receipt Date: 20140719
  Transmission Date: 20150326
  Serious: No
  Sender: FDA-Public Use
  Company Number: US-GSKPPD-2014GSK004772

PATIENT

DRUGS (1)
  1. AVANDIA [Suspect]
     Active Substance: ROSIGLITAZONE MALEATE
     Indication: DIABETES MELLITUS
     Route: 048

REACTIONS (6)
  - Electrocardiogram abnormal [None]
  - Dyslipidaemia [None]
  - Electrocardiogram [None]
  - Hypertension [None]
  - Dyspnoea [None]
  - Hyperlipidaemia [None]
